FAERS Safety Report 12746851 (Version 1)
Quarter: 2016Q3

REPORT INFORMATION
  Report Type: Spontaneous
  Country: US (occurrence: US)
  Receive Date: 20160915
  Receipt Date: 20160915
  Transmission Date: 20161109
  Serious: Yes (Other)
  Sender: FDA-Public Use
  Company Number: None

PATIENT
  Age: 82 Year
  Sex: Female
  Weight: 105.75 kg

DRUGS (15)
  1. SIMVASTATIN. [Concomitant]
     Active Substance: SIMVASTATIN
  2. COUGH DM [Suspect]
     Active Substance: DEXTROMETHORPHAN HYDROBROMIDE
     Indication: CHILLS
     Route: 048
     Dates: start: 20160909, end: 20160910
  3. LISINOPRIL. [Concomitant]
     Active Substance: LISINOPRIL
  4. BILBERRY [Concomitant]
     Active Substance: BILBERRY
  5. BROVANA AND BUDESONIDE [Concomitant]
  6. VITAMIN C [Concomitant]
     Active Substance: ASCORBIC ACID
  7. RANITIDINE. [Concomitant]
     Active Substance: RANITIDINE
  8. BAYER BACK AND BODY EXTRA STRENGTH [Concomitant]
     Active Substance: ASPIRIN\CAFFEINE
  9. CORDYCEPS SINENSIS EXTRACT\PANAX GINSENG ROOT EXTRACT\POMEGRANATE [Concomitant]
     Active Substance: CORDYCEPS SINENSIS EXTRACT\PANAX GINSENG ROOT EXTRACT\POMEGRANATE
  10. COUGH DM [Suspect]
     Active Substance: DEXTROMETHORPHAN HYDROBROMIDE
     Indication: NASOPHARYNGITIS
     Route: 048
     Dates: start: 20160909, end: 20160910
  11. COUGH DM [Suspect]
     Active Substance: DEXTROMETHORPHAN HYDROBROMIDE
     Indication: PYREXIA
     Route: 048
     Dates: start: 20160909, end: 20160910
  12. HYDROCHLOROTHIZAIDE/LISNOPRIL [Concomitant]
     Active Substance: HYDROCHLOROTHIAZIDE\LISINOPRIL
  13. MONTELUKAST SOD [Concomitant]
     Active Substance: MONTELUKAST SODIUM
  14. CARVEDILOL. [Concomitant]
     Active Substance: CARVEDILOL
  15. SUPER STRESS B COMPLEX [Concomitant]

REACTIONS (4)
  - Hypersensitivity [None]
  - Activities of daily living impaired [None]
  - Pain in extremity [None]
  - Peripheral swelling [None]

NARRATIVE: CASE EVENT DATE: 20160909
